FAERS Safety Report 4582578-0 (Version None)
Quarter: 2005Q1

REPORT INFORMATION
  Report Type: 
  Country: None (occurrence: None)
  Receive Date: 20050125
  Receipt Date: 20040917
  Transmission Date: 20050727
  Serious: No
  Sender: FDA-Public Use
  Company Number: USA040874227

PATIENT
  Age: 45 Year
  Sex: Female

DRUGS (3)
  1. FORTEO [Suspect]
  2. ALLEGRA [Concomitant]
  3. PRILOSEC [Concomitant]

REACTIONS (4)
  - BLOOD CALCIUM INCREASED [None]
  - BONE DENSITY DECREASED [None]
  - MUSCULAR WEAKNESS [None]
  - PALPITATIONS [None]
